FAERS Safety Report 23402115 (Version 1)
Quarter: 2024Q1

REPORT INFORMATION
  Report Type: Spontaneous
  Country: US (occurrence: US)
  Receive Date: 20240115
  Receipt Date: 20240115
  Transmission Date: 20240410
  Serious: Yes (Hospitalization, Other)
  Sender: FDA-Public Use
  Company Number: US-PERRIGO-23US015126

PATIENT
  Sex: Male

DRUGS (1)
  1. MINOXIDIL [Suspect]
     Active Substance: MINOXIDIL
     Indication: Product used for unknown indication
     Dosage: 1 ML, BID
     Route: 061
     Dates: start: 20220503, end: 20220512

REACTIONS (20)
  - Rash [Unknown]
  - Chemical burn [Unknown]
  - Swelling face [Unknown]
  - Skin ulcer haemorrhage [Unknown]
  - Blister [Unknown]
  - Scab [Unknown]
  - Oedema [Unknown]
  - Back pain [Unknown]
  - Pain [Unknown]
  - Scar [Unknown]
  - Skin discolouration [Unknown]
  - Lymphadenopathy [Unknown]
  - Application site haemorrhage [Unknown]
  - Dandruff [Unknown]
  - Pruritus [Unknown]
  - Decreased appetite [Unknown]
  - Alopecia [Unknown]
  - Nausea [Unknown]
  - Application site pruritus [Unknown]
  - Application site pain [Unknown]

NARRATIVE: CASE EVENT DATE: 20220101
